FAERS Safety Report 8847736 (Version 1)
Quarter: 2012Q4

REPORT INFORMATION
  Report Type: Report from Study
  Country: US (occurrence: US)
  Receive Date: 20121018
  Receipt Date: 20121018
  Transmission Date: 20130627
  Serious: Yes (Other)
  Sender: FDA-Public Use
  Company Number: US-PFIZER INC-2011113568

PATIENT
  Age: 51 Year
  Sex: Female
  Weight: 72.56 kg

DRUGS (6)
  1. LYRICA [Suspect]
     Indication: FIBROMYALGIA
     Dosage: 150 mg, 3x/day
     Route: 048
     Dates: start: 2008
  2. LYRICA [Suspect]
     Dosage: UNK
     Route: 048
     Dates: start: 201209
  3. LYRICA [Suspect]
     Dosage: 150 mg, 2x/day
     Dates: start: 2012
  4. HYDROCODONE [Concomitant]
     Indication: PAIN
     Dosage: UNK, as needed
  5. AMITRIPTYLINE [Concomitant]
     Dosage: 25 mg, 1x/day
  6. CITALOPRAM [Concomitant]
     Dosage: 20 mg, 1x/day

REACTIONS (6)
  - Hypersomnia [Unknown]
  - Thyroid cancer [Unknown]
  - Cystitis [Unknown]
  - Blood count abnormal [Unknown]
  - Drug hypersensitivity [Unknown]
  - Pain [Unknown]
